FAERS Safety Report 5240594-X (Version None)
Quarter: 2007Q1

REPORT INFORMATION
  Report Type: 
  Country: None (occurrence: None)
  Receive Date: 20070219
  Receipt Date: 20070205
  Transmission Date: 20070707
  Serious: Yes (Death)
  Sender: FDA-Public Use
  Company Number: DE-AMGEN-UK209720

PATIENT

DRUGS (1)
  1. NEUPOGEN [Suspect]
     Indication: RADIOTHERAPY
     Route: 058

REACTIONS (1)
  - MALIGNANT NEOPLASM PROGRESSION [None]
